FAERS Safety Report 23370816 (Version 8)
Quarter: 2025Q1

REPORT INFORMATION
  Report Type: Spontaneous
  Country: US (occurrence: US)
  Receive Date: 20240105
  Receipt Date: 20250222
  Transmission Date: 20250408
  Serious: Yes (Other)
  Sender: SANOFI AVENTIS
  Company Number: US-SA-SAC20240102001069

PATIENT
  Age: 64 Year
  Sex: Female
  Weight: 55 kg

DRUGS (46)
  1. DUPIXENT [Suspect]
     Active Substance: DUPILUMAB
     Indication: Asthma
     Dosage: 200 MG, QOW
     Route: 058
     Dates: start: 202004
  2. DUPIXENT [Suspect]
     Active Substance: DUPILUMAB
     Indication: Chronic obstructive pulmonary disease
  3. AZITHROMYCIN [Concomitant]
     Active Substance: AZITHROMYCIN
  4. PREDNISONE [Concomitant]
     Active Substance: PREDNISONE
  5. PREDNISONE [Concomitant]
     Active Substance: PREDNISONE
  6. KETOROLAC TROMETHAMINE [Concomitant]
     Active Substance: KETOROLAC TROMETHAMINE
  7. NUVIGIL [Concomitant]
     Active Substance: ARMODAFINIL
  8. ASPIRIN [Concomitant]
     Active Substance: ASPIRIN
  9. HYOSCYAMINE SULFATE [Concomitant]
     Active Substance: HYOSCYAMINE SULFATE
  10. MODERNA COVID-19 VACCINE [Concomitant]
     Active Substance: ELASOMERAN
  11. MODERNA COVID-19 VACCINE [Concomitant]
     Active Substance: ELASOMERAN
  12. CALCIUM;VITAMIN D NOS;VITAMIN K NOS [Concomitant]
  13. ESTRACE [Concomitant]
     Active Substance: ESTRADIOL
  14. ESTRACE [Concomitant]
     Active Substance: ESTRADIOL
  15. PROLIA [Concomitant]
     Active Substance: DENOSUMAB
  16. PROLIA [Concomitant]
     Active Substance: DENOSUMAB
  17. PANTOPRAZOLE SODIUM [Concomitant]
     Active Substance: PANTOPRAZOLE SODIUM
  18. PANTOPRAZOLE SODIUM [Concomitant]
     Active Substance: PANTOPRAZOLE SODIUM
  19. MUCINEX [Concomitant]
     Active Substance: GUAIFENESIN
  20. MUCINEX [Concomitant]
     Active Substance: GUAIFENESIN
  21. LORATADINE [Concomitant]
     Active Substance: LORATADINE
  22. LORATADINE [Concomitant]
     Active Substance: LORATADINE
  23. FISH OIL [Concomitant]
     Active Substance: FISH OIL
  24. SYSTANE COMPLETE [Concomitant]
     Active Substance: PROPYLENE GLYCOL
  25. CLARITHROMYCIN [Concomitant]
     Active Substance: CLARITHROMYCIN
  26. EVOXAC [Concomitant]
     Active Substance: CEVIMELINE HYDROCHLORIDE
  27. MAGNESIUM [Concomitant]
     Active Substance: MAGNESIUM
  28. MAGNESIUM [Concomitant]
     Active Substance: MAGNESIUM
  29. VITAMIN D3 [Concomitant]
     Active Substance: CHOLECALCIFEROL
  30. XIIDRA [Concomitant]
     Active Substance: LIFITEGRAST
  31. FLONASE ALLERGY RELIEF [Concomitant]
     Active Substance: FLUTICASONE PROPIONATE
  32. GABAPENTIN [Concomitant]
     Active Substance: GABAPENTIN
  33. SINGULAIR [Concomitant]
     Active Substance: MONTELUKAST SODIUM
  34. BREO ELLIPTA [Concomitant]
     Active Substance: FLUTICASONE FUROATE\VILANTEROL TRIFENATATE
  35. ALBUTEROL SULFATE [Concomitant]
     Active Substance: ALBUTEROL SULFATE
  36. SPIRIVA RESPIMAT [Concomitant]
     Active Substance: TIOTROPIUM BROMIDE
  37. CALCIUM CARBONATE\VITAMIN D [Concomitant]
     Active Substance: CALCIUM CARBONATE\VITAMIN D
  38. ACETAMINOPHEN\HYDROCODONE [Concomitant]
     Active Substance: ACETAMINOPHEN\HYDROCODONE
  39. KRILL OIL [Concomitant]
     Active Substance: DIETARY SUPPLEMENT\KRILL OIL
  40. PROBIOTICS NOS [Concomitant]
     Active Substance: PROBIOTICS NOS
  41. CALCIUM\CHOLECALCIFEROL [Concomitant]
     Active Substance: CALCIUM\CHOLECALCIFEROL
  42. PRIMIDONE [Concomitant]
     Active Substance: PRIMIDONE
  43. NEILMED SINUS RINSE [Concomitant]
     Active Substance: SODIUM BICARBONATE\SODIUM CHLORIDE
  44. VITAMINS [Concomitant]
     Active Substance: VITAMINS
  45. VITAMIN B12 [Concomitant]
     Active Substance: CYANOCOBALAMIN
  46. CALCIUM [Concomitant]
     Active Substance: CALCIUM

REACTIONS (12)
  - Urinary tract infection staphylococcal [Not Recovered/Not Resolved]
  - Sleep disorder due to a general medical condition [Not Recovered/Not Resolved]
  - Cough [Unknown]
  - Pain [Unknown]
  - Blood urine present [Not Recovered/Not Resolved]
  - Burning sensation [Not Recovered/Not Resolved]
  - Back pain [Unknown]
  - Sinusitis [Unknown]
  - Asthma [Unknown]
  - Dyspnoea [Not Recovered/Not Resolved]
  - Sinus operation [Unknown]
  - Injection site reaction [Unknown]

NARRATIVE: CASE EVENT DATE: 20230101
